FAERS Safety Report 5060114-2 (Version None)
Quarter: 2006Q3

REPORT INFORMATION
  Report Type: 
  Country: None (occurrence: None)
  Receive Date: 20060718
  Receipt Date: 20060628
  Transmission Date: 20061208
  Serious: Yes (Hospitalization)
  Sender: FDA-Public Use
  Company Number: FR200606004275

PATIENT
  Age: 81 Year
  Sex: Female

DRUGS (2)
  1. FORTEO [Suspect]
     Indication: OSTEOPOROSIS
     Dosage: 20 UG, DAILY (1/D),  SUBCUTANEOUS
     Route: 058
     Dates: start: 20060215
  2. FORTEO PEN (250MCG/ML) (FORTEO PEN 250MCG/ML (3ML)) PEN, DISPOSSABLE [Concomitant]

REACTIONS (5)
  - DRY MOUTH [None]
  - DYSPHAGIA [None]
  - MOVEMENT DISORDER [None]
  - RESPIRATORY DISORDER [None]
  - SPEECH DISORDER [None]
